FAERS Safety Report 16796565 (Version 1)
Quarter: 2019Q3

REPORT INFORMATION
  Report Type: Spontaneous
  Country: AU (occurrence: AU)
  Receive Date: 20190911
  Receipt Date: 20190911
  Transmission Date: 20191005
  Serious: Yes (Life-Threatening)
  Sender: FDA-Public Use
  Company Number: AU-MYLANLABS-2019M1085959

PATIENT
  Age: 3 Year
  Sex: Male

DRUGS (1)
  1. EPIPEN JR [Suspect]
     Active Substance: EPINEPHRINE
     Indication: ANAPHYLACTIC REACTION
     Dosage: UNK
     Route: 065

REACTIONS (3)
  - Device failure [Recovered/Resolved]
  - Intentional product misuse [Unknown]
  - Expired product administered [Unknown]
